FAERS Safety Report 7209348-9 (Version None)
Quarter: 2011Q1

REPORT INFORMATION
  Report Type: 
  Country: None (occurrence: None)
  Receive Date: 20110104
  Receipt Date: 20101227
  Transmission Date: 20110831
  Serious: Yes (Death)
  Sender: FDA-Public Use
  Company Number: ES-NAPPMUNDI-DEU-2010-0006835

PATIENT
  Age: 67 Year

DRUGS (1)
  1. MST 100 CONTINUS, COMPRIMIDOS DE 100 MG [Suspect]
     Indication: CANCER PAIN
     Dosage: 100 MG, Q12H
     Route: 048
     Dates: start: 20101101

REACTIONS (2)
  - DRUG PRESCRIBING ERROR [None]
  - DEATH [None]
